FAERS Safety Report 7617825-1 (Version None)
Quarter: 2011Q3

REPORT INFORMATION
  Report Type: 
  Country: None (occurrence: None)
  Receive Date: 20110718
  Receipt Date: 20110628
  Transmission Date: 20111222
  Serious: Yes (Other)
  Sender: FDA-Public Use
  Company Number: US-BAYER-2011-056099

PATIENT
  Age: 28 Year
  Sex: Female

DRUGS (2)
  1. MIRENA [Suspect]
     Indication: CONTRACEPTION
     Dosage: 20 MCG/24HR, CONT
     Route: 015
     Dates: start: 20110616, end: 20110621
  2. LEXAPRO [Concomitant]
     Indication: POSTPARTUM DISORDER

REACTIONS (7)
  - DEPRESSED MOOD [None]
  - PREGNANCY WITH CONTRACEPTIVE DEVICE [None]
  - PAIN [None]
  - MUSCLE SPASMS [None]
  - AFFECT LABILITY [None]
  - MALAISE [None]
  - ABORTION SPONTANEOUS [None]
